FAERS Safety Report 4500646-6 (Version None)
Quarter: 2004Q4

REPORT INFORMATION
  Report Type: 
  Country: None (occurrence: None)
  Receive Date: 20041115
  Receipt Date: 20041103
  Transmission Date: 20050328
  Serious: Yes (Hospitalization)
  Sender: FDA-Public Use
  Company Number: FR-AMGEN-UK098084

PATIENT
  Sex: Female

DRUGS (1)
  1. AMG 099073 [Suspect]
     Indication: PARATHYROID TUMOUR MALIGNANT
     Route: 048
     Dates: start: 20041013, end: 20041101

REACTIONS (8)
  - ASTHENIA [None]
  - GENERAL PHYSICAL HEALTH DETERIORATION [None]
  - HAEMODIALYSIS [None]
  - HYPERCALCAEMIA [None]
  - HYPOKALAEMIA [None]
  - NAUSEA [None]
  - PARAESTHESIA [None]
  - VOMITING [None]
